FAERS Safety Report 4682366-0 (Version None)
Quarter: 2005Q2

REPORT INFORMATION
  Report Type: 
  Country: None (occurrence: None)
  Receive Date: 20050602
  Receipt Date: 20050602
  Transmission Date: 20051028
  Serious: Yes (Disabling)
  Sender: FDA-Public Use
  Company Number: None

PATIENT
  Age: 79 Year
  Sex: Female
  Weight: 65.7716 kg

DRUGS (4)
  1. CEFUROXIME AXETIL [Suspect]
     Indication: CHRONIC OBSTRUCTIVE PULMONARY DISEASE
     Dosage: 3 TABLETS TWICE DAILY FOR 7 DAY
     Dates: start: 20021021, end: 20021024
  2. THYROID TAB [Concomitant]
  3. COMBIVENT [Concomitant]
  4. AZMACORT [Concomitant]

REACTIONS (5)
  - FACIAL PAIN [None]
  - HYPOAESTHESIA [None]
  - MOVEMENT DISORDER [None]
  - PAIN IN EXTREMITY [None]
  - PARAESTHESIA [None]
